FAERS Safety Report 8772686 (Version 1)
Quarter: 2012Q4

REPORT INFORMATION
  Report Type: 
  Country: JP (occurrence: JP)
  Receive Date: 20120905
  Receipt Date: 20120905
  Transmission Date: 20130627
  Serious: Yes (Other)
  Sender: FDA-Public Use
  Company Number: JP-JNJFOC-20120900443

PATIENT
  Sex: Female

DRUGS (1)
  1. ITRIZOLE [Suspect]
     Indication: ORAL LICHEN PLANUS
     Route: 048

REACTIONS (3)
  - Retinal haemorrhage [Unknown]
  - Haematochezia [Unknown]
  - Ocular hyperaemia [Unknown]
